FAERS Safety Report 13341235 (Version 1)
Quarter: 2017Q1

REPORT INFORMATION
  Report Type: Spontaneous
  Country: US (occurrence: US)
  Receive Date: 20170316
  Receipt Date: 20170316
  Transmission Date: 20170428
  Serious: No
  Sender: FDA-Public Use
  Company Number: US-ROCHE-1873201

PATIENT

DRUGS (3)
  1. AVASTIN [Suspect]
     Active Substance: BEVACIZUMAB
     Indication: PRODUCT USED FOR UNKNOWN INDICATION
     Route: 065
  2. ACTEMRA [Suspect]
     Active Substance: TOCILIZUMAB
     Indication: PRODUCT USED FOR UNKNOWN INDICATION
     Route: 065
  3. TECENTRIQ [Suspect]
     Active Substance: ATEZOLIZUMAB
     Indication: PRODUCT USED FOR UNKNOWN INDICATION
     Route: 065

REACTIONS (2)
  - Intercepted medication error [Unknown]
  - No adverse event [Unknown]
